FAERS Safety Report 23957949 (Version 1)
Quarter: 2024Q2

REPORT INFORMATION
  Report Type: Spontaneous
  Country: IT (occurrence: IT)
  Receive Date: 20240610
  Receipt Date: 20240610
  Transmission Date: 20240716
  Serious: Yes (Hospitalization, Other)
  Sender: FDA-Public Use
  Company Number: None

PATIENT

DRUGS (2)
  1. BUPROPION HYDROCHLORIDE [Suspect]
     Active Substance: BUPROPION HYDROCHLORIDE
     Indication: Suicide attempt
     Dosage: 48 DF
     Route: 048
     Dates: start: 20240522, end: 20240522
  2. BUPROPION HYDROCHLORIDE [Suspect]
     Active Substance: BUPROPION HYDROCHLORIDE
     Indication: Intentional overdose

REACTIONS (5)
  - Hallucination [Recovering/Resolving]
  - Suicide attempt [Recovering/Resolving]
  - Visual impairment [Recovering/Resolving]
  - Intentional overdose [Recovering/Resolving]
  - Drug abuse [Unknown]

NARRATIVE: CASE EVENT DATE: 20240522
